FAERS Safety Report 5076407-9 (Version None)
Quarter: 2006Q3

REPORT INFORMATION
  Report Type: 
  Country: None (occurrence: None)
  Receive Date: 20060807
  Receipt Date: 20060726
  Transmission Date: 20061208
  Serious: Yes (Life-Threatening, Hospitalization)
  Sender: FDA-Public Use
  Company Number: DE200607004954

PATIENT
  Age: 60 Year
  Sex: Male

DRUGS (3)
  1. GEMZAR [Suspect]
     Indication: BRONCHIAL CARCINOMA
     Dosage: 1000 MG/M2, INTRAVENOUS
     Route: 042
     Dates: start: 20060101, end: 20060411
  2. CISPLATIN [Concomitant]
  3. CONTRAST MEDIA [Concomitant]

REACTIONS (2)
  - ACUTE RESPIRATORY DISTRESS SYNDROME [None]
  - ALVEOLITIS [None]
